FAERS Safety Report 5015424-1 (Version None)
Quarter: 2006Q2

REPORT INFORMATION
  Report Type: 
  Country: None (occurrence: None)
  Receive Date: 20060601
  Receipt Date: 19960911
  Transmission Date: 20061013
  Serious: Yes (Death, Hospitalization, Other)
  Sender: FDA-Public Use
  Company Number: CDN/96/00291/LEX

PATIENT
  Age: 32 Year
  Sex: Male
  Weight: 76 kg

DRUGS (7)
  1. CLOZARIL [Suspect]
     Indication: SCHIZOPHRENIFORM DISORDER
  2. CLOZARIL [Suspect]
     Route: 048
     Dates: start: 19960904, end: 19960905
  3. CLOZARIL [Suspect]
     Route: 048
     Dates: start: 19960819, end: 19960827
  4. CLOZARIL [Suspect]
     Route: 048
     Dates: start: 19960828, end: 19960830
  5. PROCYCLIDINE HYDROCHLORIDE 2MG TAB [Concomitant]
     Indication: PARKINSONISM
     Route: 048
     Dates: start: 19960702, end: 19960905
  6. HALDOL [Concomitant]
     Indication: SCHIZOPHRENIFORM DISORDER
     Route: 048
     Dates: start: 19960805, end: 19960819
  7. HALDOL [Concomitant]
     Route: 048
     Dates: start: 19960824, end: 19960826

REACTIONS (10)
  - CARDIAC ARREST [None]
  - CARDIAC VALVE DISEASE [None]
  - CONVULSION [None]
  - ECCHYMOSIS [None]
  - HEADACHE [None]
  - LOSS OF CONSCIOUSNESS [None]
  - PYREXIA [None]
  - RESPIRATORY ARREST [None]
  - VASCULITIS [None]
  - WHITE BLOOD CELL COUNT DECREASED [None]
